FAERS Safety Report 6141504-3 (Version None)
Quarter: 2009Q2

REPORT INFORMATION
  Report Type: 
  Country: None (occurrence: None)
  Receive Date: 20090401
  Receipt Date: 20090401
  Transmission Date: 20091009
  Serious: Yes (Other)
  Sender: FDA-Public Use
  Company Number: None

PATIENT
  Age: 45 Year
  Sex: Male
  Weight: 72.5755 kg

DRUGS (1)
  1. DESPEC UNKNOWN MFG INTERNATIONAL [Suspect]
     Indication: COUGH
     Dosage: ONE TABLET 2 PO
     Route: 048
     Dates: start: 20090331

REACTIONS (3)
  - CHOKING [None]
  - FOREIGN BODY TRAUMA [None]
  - PRODUCT QUALITY ISSUE [None]
